FAERS Safety Report 12673397 (Version 2)
Quarter: 2017Q1

REPORT INFORMATION
  Report Type: Spontaneous
  Country: US (occurrence: US)
  Receive Date: 20160822
  Receipt Date: 20170216
  Transmission Date: 20170428
  Serious: No
  Sender: FDA-Public Use
  Company Number: US-ACTELION-A-NJ2016-141027

PATIENT
  Age: 75 Year
  Sex: Female

DRUGS (2)
  1. FLUOCINONIDE. [Concomitant]
     Active Substance: FLUOCINONIDE
     Dosage: 0.05% TO AFFECTED AREAS 2 NIGHTS PER WEEK
     Route: 061
  2. VALCHLOR [Suspect]
     Active Substance: MECHLORETHAMINE
     Indication: MYCOSIS FUNGOIDES
     Dosage: UNK, 5 NIGHTS PER WEEK
     Route: 061
     Dates: start: 20160712

REACTIONS (3)
  - Pruritus [Unknown]
  - Application site irritation [Unknown]
  - Rash [Unknown]
